FAERS Safety Report 7358207-X (Version None)
Quarter: 2011Q1

REPORT INFORMATION
  Report Type: 
  Country: None (occurrence: None)
  Receive Date: 20110317
  Receipt Date: 20110315
  Transmission Date: 20110831
  Serious: Yes (Other)
  Sender: FDA-Public Use
  Company Number: JP-ROCHE-753285

PATIENT
  Sex: Male
  Weight: 8.5 kg

DRUGS (2)
  1. OSELTAMIVIR [Suspect]
     Indication: ANTIVIRAL PROPHYLAXIS
     Dosage: DOSE FORM: ORAL FORMATION(NOT OTHERWISE SPECIFIED)
     Route: 064
     Dates: start: 20091202, end: 20091206
  2. FLU VACCINATION [Concomitant]
     Dosage: DRUG NAME: NEW FLU VACCINATION

REACTIONS (3)
  - NORMAL NEWBORN [None]
  - HYPOTONIA [None]
  - DRUG EXPOSURE DURING PREGNANCY [None]
